APPROVED DRUG PRODUCT: DOPAMINE HYDROCHLORIDE IN DEXTROSE 5%
Active Ingredient: DOPAMINE HYDROCHLORIDE
Strength: 1.6MG/ML
Dosage Form/Route: INJECTABLE;INJECTION
Application: N020542 | Product #001
Applicant: HOSPIRA INC
Approved: Aug 30, 1995 | RLD: No | RS: No | Type: DISCN